FAERS Safety Report 8509832-1 (Version None)
Quarter: 2012Q2

REPORT INFORMATION
  Report Type: 
  Country: None (occurrence: None)
  Receive Date: 20120405
  Receipt Date: 20090612
  Transmission Date: 20120825
  Serious: Yes (Disabling)
  Sender: FDA-Public Use
  Company Number: PHEH2009US05961

PATIENT
  Age: 56 Year
  Sex: Female
  Weight: 76.6 kg

DRUGS (6)
  1. AVELOX [Concomitant]
  2. RECLAST [Suspect]
     Indication: OSTEOPOROSIS POSTMENOPAUSAL
     Dosage: 5 MG
     Dates: start: 20080826
  3. SOMA [Concomitant]
  4. ZETIA [Concomitant]
  5. CALCIUM CARBONATE [Concomitant]
  6. LEXAPRO [Concomitant]

REACTIONS (1)
  - OSTEONECROSIS [None]
